FAERS Safety Report 9863069 (Version 1)
Quarter: 2014Q1

REPORT INFORMATION
  Report Type: Spontaneous
  Country: US (occurrence: US)
  Receive Date: 20140203
  Receipt Date: 20140203
  Transmission Date: 20141002
  Serious: No
  Sender: FDA-Public Use
  Company Number: US-TEVA-459625USA

PATIENT
  Age: 2 Year
  Sex: Male
  Weight: 11.8 kg

DRUGS (3)
  1. PROAIR HFA [Suspect]
     Indication: ASTHMA
  2. PROAIR HFA [Suspect]
     Indication: PNEUMONIA
  3. AZITHROMYCIN [Concomitant]
     Indication: PNEUMONIA

REACTIONS (3)
  - Dizziness [Not Recovered/Not Resolved]
  - Tremor [Not Recovered/Not Resolved]
  - Off label use [Unknown]
